FAERS Safety Report 6912808-9 (Version None)
Quarter: 2010Q3

REPORT INFORMATION
  Report Type: 
  Country: None (occurrence: None)
  Receive Date: 20100806
  Receipt Date: 20090115
  Transmission Date: 20110219
  Serious: No
  Sender: FDA-Public Use
  Company Number: US-PFIZER INC-2008044858

PATIENT
  Sex: Male
  Weight: 95.9 kg

DRUGS (7)
  1. DETROL LA [Suspect]
     Indication: PROSTATOMEGALY
     Dosage: 4 MG, 1X/DAY
  2. WARFARIN SODIUM [Concomitant]
     Indication: HYPERTENSION
  3. FUROSEMIDE [Concomitant]
  4. GABAPENTIN [Concomitant]
  5. PRILOSEC [Concomitant]
  6. ALLOPURINOL [Concomitant]
  7. IRON [Concomitant]

REACTIONS (1)
  - DRUG EFFECT DECREASED [None]
